FAERS Safety Report 6202946-0 (Version None)
Quarter: 2009Q2

REPORT INFORMATION
  Report Type: 
  Country: None (occurrence: None)
  Receive Date: 20090526
  Receipt Date: 20090511
  Transmission Date: 20091009
  Serious: Yes (Other)
  Sender: FDA-Public Use
  Company Number: GB-PFIZER INC-2009215672

PATIENT
  Sex: Male
  Weight: 2.941 kg

DRUGS (5)
  1. MORPHINE SULFATE [Suspect]
     Dosage: 20 MG, UNK
     Route: 064
     Dates: start: 20030101
  2. MORPHINE SULFATE [Suspect]
     Dosage: 14 MG, UNK
     Route: 064
     Dates: start: 20030101
  3. MORPHINE SULFATE [Suspect]
     Dosage: 100 MG, UNK
     Route: 064
     Dates: start: 20030101
  4. PARACETAMOL [Suspect]
     Route: 064
  5. HEPARIN SODIUM [Suspect]
     Route: 064

REACTIONS (4)
  - DRUG EXPOSURE DURING PREGNANCY [None]
  - DRUG WITHDRAWAL SYNDROME NEONATAL [None]
  - FEELING JITTERY [None]
  - PREMATURE BABY [None]
